FAERS Safety Report 9531158 (Version 2)
Quarter: 2013Q4

REPORT INFORMATION
  Report Type: Report from Study
  Country: BR (occurrence: BR)
  Receive Date: 20130918
  Receipt Date: 20131010
  Transmission Date: 20140711
  Serious: Yes (Other)
  Sender: FDA-Public Use
  Company Number: PHHY2013BR102754

PATIENT
  Sex: Female
  Weight: 48 kg

DRUGS (2)
  1. GILENYA [Suspect]
     Indication: MULTIPLE SCLEROSIS
     Dosage: 0.5 MG, QD
     Route: 048
     Dates: start: 20130729
  2. DROSPIRENONE W/ETHINYLESTRADIOL [Interacting]
     Indication: CONTRACEPTION
     Dosage: 1 DF, QD

REACTIONS (2)
  - Haemorrhage [Recovering/Resolving]
  - Anaemia [Not Recovered/Not Resolved]
